FAERS Safety Report 8925936 (Version 1)
Quarter: 2012Q4

REPORT INFORMATION
  Report Type: 
  Country: CN (occurrence: CN)
  Receive Date: 20121126
  Receipt Date: 20121126
  Transmission Date: 20130627
  Serious: Yes (Hospitalization)
  Sender: FDA-Public Use
  Company Number: CN-009507513-1211CHN009719

PATIENT
  Age: 39 Year
  Sex: Male
  Weight: 72 kg

DRUGS (1)
  1. CLARITYNE [Suspect]
     Indication: DERMATITIS ALLERGIC
     Dosage: 1 DF, UNK
     Route: 048
     Dates: start: 20101005, end: 20101025

REACTIONS (1)
  - Drug-induced liver injury [Unknown]
